FAERS Safety Report 10712037 (Version 1)
Quarter: 2015Q1

REPORT INFORMATION
  Report Type: Spontaneous
  Country: US (occurrence: US)
  Receive Date: 20150114
  Receipt Date: 20150114
  Transmission Date: 20150721
  Serious: No
  Sender: FDA-Public Use
  Company Number: US-ALLERGAN-1406500US

PATIENT
  Sex: Female

DRUGS (3)
  1. LEVOTHYROXINE [Concomitant]
     Active Substance: LEVOTHYROXINE
     Indication: HYPOTHYROIDISM
     Dosage: 50 MG, QD
     Route: 048
  2. ACZONE [Suspect]
     Active Substance: DAPSONE
     Dosage: UNK
     Route: 061
  3. ACZONE [Suspect]
     Active Substance: DAPSONE
     Indication: ROSACEA
     Dosage: UNK MG, UNK
     Route: 061
     Dates: start: 2013

REACTIONS (7)
  - Eye swelling [Recovered/Resolved]
  - Hand fracture [Recovered/Resolved]
  - Off label use [Unknown]
  - Erythema [Recovered/Resolved]
  - Swelling face [Recovered/Resolved]
  - Pruritus [Recovered/Resolved]
  - Skin exfoliation [Recovered/Resolved]

NARRATIVE: CASE EVENT DATE: 201402
